FAERS Safety Report 5802854-0 (Version None)
Quarter: 2008Q3

REPORT INFORMATION
  Report Type: 
  Country: None (occurrence: None)
  Receive Date: 20080703
  Receipt Date: 20080626
  Transmission Date: 20090109
  Serious: Yes (Hospitalization)
  Sender: FDA-Public Use
  Company Number: 163-20785-08032005

PATIENT
  Age: 63 Year
  Sex: Male

DRUGS (10)
  1. THALOMID [Suspect]
     Indication: PROSTATE CANCER
     Dosage: 50 MG, 1 IN 1 D, ORAL, 100 MG, QD, ORAL, 200 MG, QD, ORAL
     Route: 048
     Dates: start: 20051018, end: 20051129
  2. THALOMID [Suspect]
     Indication: PROSTATE CANCER
     Dosage: 50 MG, 1 IN 1 D, ORAL, 100 MG, QD, ORAL, 200 MG, QD, ORAL
     Route: 048
     Dates: start: 20051130, end: 20060615
  3. THALOMID [Suspect]
     Indication: PROSTATE CANCER
     Dosage: 50 MG, 1 IN 1 D, ORAL, 100 MG, QD, ORAL, 200 MG, QD, ORAL
     Route: 048
     Dates: start: 20060616, end: 20080225
  4. LOVENOX [Concomitant]
  5. TAXOTERE [Concomitant]
  6. AVASTIN [Concomitant]
  7. LISINOPRIL [Concomitant]
  8. HYDROCHLOROTHIAZIDE [Concomitant]
  9. ENOXAPARIN SODIUM [Concomitant]
  10. DOCETAXEL [Concomitant]

REACTIONS (5)
  - HAEMATURIA [None]
  - RENAL FAILURE ACUTE [None]
  - RHABDOMYOLYSIS [None]
  - URINARY TRACT INFECTION [None]
  - UROSEPSIS [None]
